FAERS Safety Report 24840334 (Version 1)
Quarter: 2025Q1

REPORT INFORMATION
  Report Type: Spontaneous
  Country: CH (occurrence: CH)
  Receive Date: 20250114
  Receipt Date: 20250114
  Transmission Date: 20250409
  Serious: Yes (Death, Life-Threatening, Hospitalization, Other)
  Sender: ASTELLAS
  Company Number: CH-ASTELLAS-2025-AER-001769

PATIENT
  Age: 18 Year
  Sex: Female

DRUGS (1)
  1. TACROLIMUS [Suspect]
     Active Substance: TACROLIMUS
     Indication: Lung transplant
     Route: 048

REACTIONS (7)
  - Organising pneumonia [Fatal]
  - Bronchopulmonary aspergillosis [Fatal]
  - Staphylococcal infection [Unknown]
  - Upper respiratory tract infection [Unknown]
  - Adenovirus infection [Unknown]
  - Rhinovirus infection [Unknown]
  - Off label use [Unknown]
